FAERS Safety Report 7889323-1 (Version None)
Quarter: 2011Q4

REPORT INFORMATION
  Report Type: 
  Country: None (occurrence: None)
  Receive Date: 20111103
  Receipt Date: 20111031
  Transmission Date: 20120403
  Serious: Yes (Life-Threatening, Hospitalization, Disabling)
  Sender: FDA-Public Use
  Company Number: JP-B.I. PHARMACEUTICALS,INC./RIDGEFIELD-2011-BP-14141NB

PATIENT
  Sex: Male

DRUGS (4)
  1. PRADAXA [Suspect]
     Indication: ATRIAL FIBRILLATION
     Dosage: 300 MG
     Route: 048
     Dates: start: 20110508
  2. RABEPRAZOLE SODIUM [Concomitant]
     Dosage: 20 MG
     Route: 065
  3. TENORMIN [Concomitant]
     Dosage: 25 MG
     Route: 065
  4. LANIRAPID [Concomitant]
     Route: 065

REACTIONS (1)
  - CEREBRAL INFARCTION [None]
